FAERS Safety Report 6820847-1 (Version None)
Quarter: 2010Q3

REPORT INFORMATION
  Report Type: 
  Country: None (occurrence: None)
  Receive Date: 20100707
  Receipt Date: 20070724
  Transmission Date: 20110219
  Serious: No
  Sender: FDA-Public Use
  Company Number: US-PFIZER INC-2007061249

PATIENT
  Sex: Female
  Weight: 147.42 kg

DRUGS (2)
  1. ZOLOFT [Suspect]
     Indication: DEPRESSION
     Dates: start: 20060101
  2. ZOLOFT [Suspect]
     Indication: ANXIETY

REACTIONS (8)
  - ASTHENIA [None]
  - BLOOD PRESSURE INCREASED [None]
  - DIZZINESS [None]
  - DRUG INEFFECTIVE [None]
  - DYSPNOEA [None]
  - FATIGUE [None]
  - HEADACHE [None]
  - PALPITATIONS [None]
